FAERS Safety Report 17895442 (Version 2)
Quarter: 2020Q2

REPORT INFORMATION
  Report Type: Report from Study
  Country: CO (occurrence: CO)
  Receive Date: 20200615
  Receipt Date: 20200618
  Transmission Date: 20200714
  Serious: Yes (Hospitalization)
  Sender: FDA-Public Use
  Company Number: NVSC2019CO091342

PATIENT
  Sex: Male

DRUGS (1)
  1. JADENU [Suspect]
     Active Substance: DEFERASIROX
     Indication: MYELOFIBROSIS
     Dosage: 360 MG, BID (2 OF 360 MG)
     Route: 065
     Dates: start: 201801

REACTIONS (3)
  - Pulmonary congestion [Unknown]
  - Pneumonia [Unknown]
  - Influenza [Unknown]
